FAERS Safety Report 14581774 (Version 1)
Quarter: 2018Q1

REPORT INFORMATION
  Report Type: Spontaneous
  Country: US (occurrence: US)
  Receive Date: 20180227
  Receipt Date: 20180227
  Transmission Date: 20180509
  Serious: Yes (Hospitalization)
  Sender: FDA-Public Use
  Company Number: None

PATIENT
  Age: 49 Year
  Sex: Female
  Weight: 105.1 kg

DRUGS (12)
  1. COLCHICINE. [Concomitant]
     Active Substance: COLCHICINE
  2. TRAZODONE [Concomitant]
     Active Substance: TRAZODONE HYDROCHLORIDE
  3. PREDNISONE. [Concomitant]
     Active Substance: PREDNISONE
  4. TOPIRAMATE. [Concomitant]
     Active Substance: TOPIRAMATE
  5. FLECAINIDE [Concomitant]
     Active Substance: FLECAINIDE
  6. ONDANSETRON [Concomitant]
     Active Substance: ONDANSETRON
  7. OMEPRAZOLE. [Concomitant]
     Active Substance: OMEPRAZOLE
  8. MAGNESIUM OXIDE. [Concomitant]
     Active Substance: MAGNESIUM OXIDE
  9. METOPROLOL TARTRATE. [Concomitant]
     Active Substance: METOPROLOL TARTRATE
  10. WARFARIN [Concomitant]
     Active Substance: WARFARIN
  11. KINERET [Suspect]
     Active Substance: ANAKINRA
     Indication: ARTHRITIS
     Route: 058
     Dates: start: 20170113, end: 20171230
  12. ATORVASTATIN [Concomitant]
     Active Substance: ATORVASTATIN

REACTIONS (3)
  - Sepsis [None]
  - Therapy change [None]
  - Arthritis [None]

NARRATIVE: CASE EVENT DATE: 20171230
